FAERS Safety Report 7604288-5 (Version None)
Quarter: 2011Q3

REPORT INFORMATION
  Report Type: 
  Country: None (occurrence: None)
  Receive Date: 20110712
  Receipt Date: 20110707
  Transmission Date: 20111222
  Serious: Yes (Hospitalization, Other)
  Sender: FDA-Public Use
  Company Number: US-PFIZER INC-2011073112

PATIENT
  Sex: Male

DRUGS (2)
  1. SUTENT [Suspect]
     Indication: METASTATIC RENAL CELL CARCINOMA
     Dosage: 12.5 MG, 3X/DAY, X 28 DAYS EVERY 42 DAYS
     Route: 048
     Dates: start: 20110311
  2. SUTENT [Suspect]
     Dosage: 12.5 MG, 2X/DAY
     Route: 048
     Dates: start: 20110429, end: 20110703

REACTIONS (2)
  - TRANSIENT ISCHAEMIC ATTACK [None]
  - JAUNDICE [None]
